FAERS Safety Report 14689574 (Version 7)
Quarter: 2024Q4

REPORT INFORMATION
  Report Type: Spontaneous
  Country: IE (occurrence: IE)
  Receive Date: 20180328
  Receipt Date: 20241223
  Transmission Date: 20250114
  Serious: Yes (Other)
  Sender: BRISTOL-MYERS SQUIBB COMPANY
  Company Number: IE-GLAXOSMITHKLINE-IE2018GSK008052

PATIENT
  Age: 37 Year
  Sex: Female

DRUGS (10)
  1. TRIAMCINOLONE ACETONIDE [Suspect]
     Active Substance: TRIAMCINOLONE ACETONIDE
     Indication: Sarcoidosis
     Dosage: UNK
     Route: 026
  2. CLOBETASOL PROPIONATE [Suspect]
     Active Substance: CLOBETASOL PROPIONATE
     Indication: Sarcoidosis
     Route: 061
  3. HYDROXYCHLOROQUINE [Suspect]
     Active Substance: HYDROXYCHLOROQUINE
     Indication: Cutaneous sarcoidosis
     Dosage: 200 MG, BID
  4. PREDNISOLONE [Suspect]
     Active Substance: PREDNISOLONE
     Indication: Cutaneous sarcoidosis
     Route: 048
  5. METHOTREXATE [Suspect]
     Active Substance: METHOTREXATE
     Indication: Cutaneous sarcoidosis
     Dosage: 10 MG, QWK
     Route: 048
  6. PROTOPIC [Suspect]
     Active Substance: TACROLIMUS
     Indication: Sarcoidosis
     Route: 061
  7. FLUCONAZOLE [Concomitant]
     Active Substance: FLUCONAZOLE
     Indication: Product used for unknown indication
  8. COTRIMOXAZOLE [Concomitant]
     Active Substance: SULFAMETHOXAZOLE\TRIMETHOPRIM
     Indication: Product used for unknown indication
  9. EFAVIRENZ [Concomitant]
     Active Substance: EFAVIRENZ
     Indication: Product used for unknown indication
  10. LAMIVUDINE AND ZIDOVUDINE [Concomitant]
     Active Substance: LAMIVUDINE\ZIDOVUDINE
     Indication: Product used for unknown indication

REACTIONS (5)
  - Leukopenia [Unknown]
  - Cushingoid [Unknown]
  - Skin atrophy [Unknown]
  - Drug ineffective [Unknown]
  - Off label use [Unknown]
